FAERS Safety Report 21345896 (Version 1)
Quarter: 2022Q3

REPORT INFORMATION
  Report Type: Spontaneous
  Country: US (occurrence: US)
  Receive Date: 20220916
  Receipt Date: 20220916
  Transmission Date: 20221027
  Serious: No
  Sender: FDA-Public Use
  Company Number: US-BAYER-2022A115940

PATIENT
  Age: 69 Year
  Sex: Female

DRUGS (2)
  1. CLARITIN-D 12 HOUR [Suspect]
     Active Substance: LORATADINE\PSEUDOEPHEDRINE SULFATE
     Indication: COVID-19
     Route: 048
  2. CLARITINE ALLERGY [Concomitant]
     Dosage: 1 TABLET A DAY
     Route: 048

REACTIONS (2)
  - Off label use [Recovered/Resolved with Sequelae]
  - Product use complaint [None]

NARRATIVE: CASE EVENT DATE: 20220817
